FAERS Safety Report 5975004-8 (Version None)
Quarter: 2008Q4

REPORT INFORMATION
  Report Type: 
  Country: None (occurrence: None)
  Receive Date: 20081202
  Receipt Date: 20081128
  Transmission Date: 20090506
  Serious: Yes (Other)
  Sender: FDA-Public Use
  Company Number: JP-JNJFOC-20081200103

PATIENT

DRUGS (2)
  1. ITRACONAZOLE [Suspect]
     Indication: RESPIRATORY DISORDER
     Route: 048
  2. VALPROATE SODIUM [Concomitant]
     Route: 065

REACTIONS (1)
  - EPILEPSY [None]
